FAERS Safety Report 6486162-3 (Version None)
Quarter: 2009Q4

REPORT INFORMATION
  Report Type: 
  Country: None (occurrence: None)
  Receive Date: 20091207
  Receipt Date: 20091123
  Transmission Date: 20100525
  Serious: Yes (Hospitalization)
  Sender: FDA-Public Use
  Company Number: 2009AC000454

PATIENT
  Age: 24 Year
  Sex: Female

DRUGS (16)
  1. DIGOXIN [Suspect]
     Dosage: 0.125 MG; PO
     Route: 048
     Dates: start: 20030101
  2. PLAVIX [Concomitant]
  3. AMOXICILLIN [Concomitant]
  4. MEDROL [Concomitant]
  5. NEXIUM [Concomitant]
  6. TERAZOL 1 [Concomitant]
  7. NUTRINATE [Concomitant]
  8. PRECARE [Concomitant]
  9. METHYLPRED [Concomitant]
  10. VALTREX [Concomitant]
  11. FERROUS SULFATE TAB [Concomitant]
  12. AUGMENTIN [Concomitant]
  13. ACETAMINOPHEN AND HYDROCODONE BITARTRATE [Concomitant]
  14. IBUPROFEN [Concomitant]
  15. ALREX [Concomitant]
  16. ASPIRIN [Concomitant]

REACTIONS (14)
  - ANXIETY [None]
  - CARDIAC DISORDER [None]
  - CHEST DISCOMFORT [None]
  - CHEST PAIN [None]
  - DIZZINESS [None]
  - DYSPNOEA [None]
  - ECONOMIC PROBLEM [None]
  - MULTIPLE INJURIES [None]
  - OEDEMA PERIPHERAL [None]
  - ORTHOPNOEA [None]
  - PALPITATIONS [None]
  - PERICARDIAL EFFUSION [None]
  - SURGERY [None]
  - UNEVALUABLE EVENT [None]
